FAERS Safety Report 8720021 (Version 3)
Quarter: 2012Q4

REPORT INFORMATION
  Report Type: 
  Country: GB (occurrence: GB)
  Receive Date: 20120813
  Receipt Date: 20120918
  Transmission Date: 20130627
  Serious: Yes (Other)
  Sender: FDA-Public Use
  Company Number: GB-BAYER-2012-078953

PATIENT
  Age: 42 Year
  Sex: Female
  Weight: 64.85 kg

DRUGS (2)
  1. MIRENA [Suspect]
     Indication: MENORRHAGIA
     Dosage: 20 mcg/24hr, CONT
     Route: 015
     Dates: start: 20110427, end: 20120828
  2. OESTRADIOL [ESTRADIOL] [Concomitant]
     Dosage: UNK
     Dates: start: 2006, end: 20120705

REACTIONS (17)
  - Candidiasis [Recovering/Resolving]
  - Depression [Recovering/Resolving]
  - Anxiety [Recovering/Resolving]
  - Feeling abnormal [Recovering/Resolving]
  - Nervousness [Recovering/Resolving]
  - Feeling abnormal [Recovering/Resolving]
  - Confusional state [Recovering/Resolving]
  - Nausea [Recovering/Resolving]
  - Headache [Recovering/Resolving]
  - Palpitations [Recovering/Resolving]
  - Malaise [Recovering/Resolving]
  - Fatigue [Recovering/Resolving]
  - Alopecia [Recovering/Resolving]
  - Bladder irritation [Recovering/Resolving]
  - Acne [Recovering/Resolving]
  - Mental impairment [None]
  - Fibromyalgia [None]
